FAERS Safety Report 5777903-9 (Version None)
Quarter: 2008Q2

REPORT INFORMATION
  Report Type: 
  Country: None (occurrence: None)
  Receive Date: 20080618
  Receipt Date: 20080612
  Transmission Date: 20081010
  Serious: Yes (Life-Threatening)
  Sender: FDA-Public Use
  Company Number: MX-MERCK-0806MEX00007

PATIENT
  Age: 47 Year
  Sex: Male

DRUGS (1)
  1. JANUVIA [Suspect]
     Indication: DIABETES MELLITUS
     Route: 048
     Dates: start: 20070101, end: 20070101

REACTIONS (2)
  - DECREASED IMMUNE RESPONSIVENESS [None]
  - DIABETIC FOOT [None]
